FAERS Safety Report 6557014-5 (Version None)
Quarter: 2010Q1

REPORT INFORMATION
  Report Type: 
  Country: None (occurrence: None)
  Receive Date: 20100128
  Receipt Date: 20100121
  Transmission Date: 20100710
  Serious: Yes (Hospitalization)
  Sender: FDA-Public Use
  Company Number: US-ABBOTT-09P-163-0606010-00

PATIENT
  Sex: Male

DRUGS (2)
  1. RITONAVIR SOFT GELATIN CAPSULES [Suspect]
     Indication: HIV INFECTION
     Route: 048
     Dates: start: 20060222, end: 20091016
  2. TMC114 [Concomitant]
     Indication: HIV INFECTION
     Route: 048
     Dates: start: 20060222, end: 20091016

REACTIONS (1)
  - ACUTE PSYCHOSIS [None]
